FAERS Safety Report 5006827-X (Version None)
Quarter: 2006Q2

REPORT INFORMATION
  Report Type: 
  Country: None (occurrence: None)
  Receive Date: 20060516
  Receipt Date: 20060503
  Transmission Date: 20061013
  Serious: Yes (Life-Threatening, Hospitalization, Other)
  Sender: FDA-Public Use
  Company Number: T200600439

PATIENT
  Age: 29 Year
  Sex: Male

DRUGS (3)
  1. METHADONE HCL [Suspect]
     Dosage: }200MG, QD
  2. ANTIVIRALS NOS (ANTIVIRALS NOS) [Suspect]
     Indication: HIV INFECTION
  3. GABAPENTIN [Suspect]

REACTIONS (9)
  - DRUG INTERACTION [None]
  - ELECTROCARDIOGRAM QT PROLONGED [None]
  - INCORRECT DOSE ADMINISTERED [None]
  - SELF-MEDICATION [None]
  - SYNCOPE [None]
  - TORSADE DE POINTES [None]
  - URINE ANALYSIS ABNORMAL [None]
  - VENTRICULAR DYSFUNCTION [None]
  - VENTRICULAR TACHYCARDIA [None]
